FAERS Safety Report 11458919 (Version 1)
Quarter: 2015Q3

REPORT INFORMATION
  Report Type: Spontaneous
  Country: SE (occurrence: SE)
  Receive Date: 20150904
  Receipt Date: 20150904
  Transmission Date: 20151125
  Serious: Yes (Hospitalization, Disabling, Other)
  Sender: FDA-Public Use
  Company Number: SE-009507513-1508SWE013821

PATIENT
  Sex: Female

DRUGS (1)
  1. ETONOGESTREL IMPLANT- UNKNOWN [Suspect]
     Active Substance: ETONOGESTREL
     Dosage: UNK
     Route: 059
     Dates: end: 201505

REACTIONS (4)
  - Abdominal pain [Unknown]
  - Sepsis [Unknown]
  - Haemorrhage [Unknown]
  - Limb amputation [Unknown]

NARRATIVE: CASE EVENT DATE: 2015
